FAERS Safety Report 24297405 (Version 1)
Quarter: 2024Q3

REPORT INFORMATION
  Report Type: Spontaneous
  Country: GB (occurrence: GB)
  Receive Date: 20240909
  Receipt Date: 20240909
  Transmission Date: 20241017
  Serious: No
  Sender: ALKEM
  Company Number: None

PATIENT
  Age: 34 Year
  Sex: Female
  Weight: 73 kg

DRUGS (14)
  1. PREGABALIN [Suspect]
     Active Substance: PREGABALIN
     Indication: Product used for unknown indication
     Dosage: 200 MILLIGRAM, QD (1 DAY, CAPSULE)
     Route: 065
     Dates: start: 20230213
  2. AMITRIPTYLINE HYDROCHLORIDE [Concomitant]
     Active Substance: AMITRIPTYLINE HYDROCHLORIDE
     Indication: Ill-defined disorder
     Dosage: 3 DOSAGE FORM (THREE TABLETS (30MG) TO BE TAKEN AT 7PM: CAN)
     Route: 065
     Dates: start: 20221024
  3. COCODAMOL [Concomitant]
     Active Substance: ACETAMINOPHEN\CODEINE PHOSPHATE
     Indication: Ill-defined disorder
     Dosage: UNK, PRN (ONE OR TWO TAKEN FOUR TIMES A DAY AS NEEDED, MAX 8 A DAY)
     Route: 065
     Dates: start: 20231011
  4. DERMOL [Concomitant]
     Active Substance: BENZALKONIUM CHLORIDE\CHLORHEXIDINE HYDROCHLORIDE\ISOPROPYL MYRISTATE\PARAFFIN
     Indication: Ill-defined disorder
     Dosage: UNK (APPLY TO SKIN OR USE AS A SOAP SUBSTITUTE)
     Route: 065
     Dates: start: 20230629
  5. DESOGESTREL [Concomitant]
     Active Substance: DESOGESTREL
     Indication: Ill-defined disorder
     Dosage: UNK (TAKE ONE TABLET DAILY AT THE SAME TIME CONTINUO)
     Route: 065
     Dates: start: 20230310
  6. DILTIAZEM [Concomitant]
     Active Substance: DILTIAZEM
     Indication: Ill-defined disorder
     Dosage: UNK (AS DIRECTED)
     Route: 065
     Dates: start: 20230629
  7. DOCUSATE SODIUM [Concomitant]
     Active Substance: DOCUSATE SODIUM
     Indication: Ill-defined disorder
     Dosage: 1 DOSAGE FORM, PRN (TAKE ONE CAPSULE FOUR TIMES A DAY WHEN REQUIRED)
     Route: 065
     Dates: start: 20230710
  8. FEXOFENADINE [Concomitant]
     Active Substance: FEXOFENADINE HYDROCHLORIDE
     Indication: Ill-defined disorder
     Dosage: UNK (1 OD)
     Route: 065
     Dates: start: 20230629
  9. FOLIC ACID [Concomitant]
     Active Substance: FOLIC ACID
     Indication: Ill-defined disorder
     Dosage: 1 DOSAGE FORM, OD (TAKE ONE TABLET ONCE A DAY)
     Route: 065
     Dates: start: 20221121
  10. BECLOMETHASONE\FORMOTEROL [Concomitant]
     Active Substance: BECLOMETHASONE\FORMOTEROL
     Indication: Ill-defined disorder
     Dosage: 2 DOSAGE FORM, BID (INHALE TWO DOSES TWICE A DAY. MAXIMUM 4 DOSES P)
     Dates: start: 20220627
  11. NAPROXEN [Concomitant]
     Active Substance: NAPROXEN
     Indication: Ill-defined disorder
     Dosage: 1 DOSAGE FORM, TID (TAKE ONE TABLET THREE TIMES A DAY WHILST ON PERIOD)
     Route: 065
     Dates: start: 20230310
  12. Oilatum [Concomitant]
     Indication: Ill-defined disorder
     Dosage: UNK (AS DIRECTED)
     Route: 065
     Dates: start: 20230825
  13. ALBUTEROL [Concomitant]
     Active Substance: ALBUTEROL
     Indication: Ill-defined disorder
     Dosage: UNK, PRN (1-2 PUFFS AS NEEDED)
     Dates: start: 20220627
  14. SERTRALINE [Concomitant]
     Active Substance: SERTRALINE HYDROCHLORIDE
     Indication: Ill-defined disorder
     Dosage: 1 DOSAGE FORM, OD (TAKE ONE TABLET ONCE A DAY)
     Route: 065
     Dates: start: 20230209

REACTIONS (1)
  - Headache [Recovered/Resolved]
